FAERS Safety Report 19850522 (Version 2)
Quarter: 2022Q1

REPORT INFORMATION
  Report Type: Report from Study
  Country: US (occurrence: US)
  Receive Date: 20210917
  Receipt Date: 20220121
  Transmission Date: 20220423
  Serious: Yes (Hospitalization)
  Sender: FDA-Public Use
  Company Number: US-TEVA-2021-US-1956406

PATIENT
  Age: 58 Year
  Sex: Female
  Weight: 82 kg

DRUGS (24)
  1. PREDNISONE [Suspect]
     Active Substance: PREDNISONE
     Indication: Diffuse large B-cell lymphoma
     Dosage: 100 MILLIGRAM DAILY;
     Route: 048
     Dates: start: 20210819, end: 20210819
  2. PREDNISONE [Suspect]
     Active Substance: PREDNISONE
     Dosage: 100 MILLIGRAM DAILY;
     Route: 048
     Dates: start: 20210821, end: 20210822
  3. PREDNISONE [Suspect]
     Active Substance: PREDNISONE
     Dosage: 100 MILLIGRAM DAILY;
     Route: 048
     Dates: start: 20210826, end: 20210826
  4. PREDNISONE [Suspect]
     Active Substance: PREDNISONE
     Dosage: 100 MILLIGRAM DAILY;
     Route: 048
     Dates: start: 20210827, end: 20210829
  5. PREDNISONE [Suspect]
     Active Substance: PREDNISONE
     Dosage: 100 MILLIGRAM DAILY;
     Route: 048
     Dates: start: 20210903, end: 20210906
  6. PREDNISONE [Suspect]
     Active Substance: PREDNISONE
     Dosage: 100 MILLIGRAM DAILY;
     Route: 048
     Dates: start: 20210904, end: 20210906
  7. PREDNISONE [Suspect]
     Active Substance: PREDNISONE
     Dosage: 100 MILLIGRAM DAILY;
     Route: 048
     Dates: start: 20210909, end: 20210909
  8. PREDNISONE [Suspect]
     Active Substance: PREDNISONE
     Dosage: 100 MILLIGRAM DAILY;
     Route: 048
     Dates: start: 20210930, end: 20210930
  9. PREDNISONE [Suspect]
     Active Substance: PREDNISONE
     Dosage: 100 MILLIGRAM DAILY;
     Route: 048
     Dates: start: 20211021, end: 20211021
  10. PREDNISONE [Suspect]
     Active Substance: PREDNISONE
     Dosage: 100 MILLIGRAM DAILY;
     Route: 048
     Dates: start: 20211111, end: 20211111
  11. VINCRISTINE [Suspect]
     Active Substance: VINCRISTINE
     Indication: Diffuse large B-cell lymphoma
     Dosage: 1Q3W
     Route: 042
     Dates: start: 20210819, end: 20210819
  12. VINCRISTINE [Suspect]
     Active Substance: VINCRISTINE
     Dosage: 1Q3W
     Route: 042
     Dates: start: 20210909, end: 20210909
  13. VINCRISTINE [Suspect]
     Active Substance: VINCRISTINE
     Dosage: 1Q3W
     Route: 042
     Dates: start: 20210930
  14. DOXORUBICIN [Suspect]
     Active Substance: DOXORUBICIN
     Indication: Diffuse large B-cell lymphoma
     Dosage: 1Q3W
     Route: 042
     Dates: start: 20210819
  15. CYCLOPHOSPHAMIDE [Suspect]
     Active Substance: CYCLOPHOSPHAMIDE
     Indication: Diffuse large B-cell lymphoma
     Dosage: 1Q3W
     Route: 042
     Dates: start: 20210819, end: 20210819
  16. RITUXIMAB [Suspect]
     Active Substance: RITUXIMAB
     Indication: Diffuse large B-cell lymphoma
     Dosage: 1Q3W
     Route: 042
     Dates: start: 20210819, end: 20210819
  17. EPCORITAMAB [Suspect]
     Active Substance: EPCORITAMAB
     Indication: Diffuse large B-cell lymphoma
     Dosage: PRIMING DOSE 0.6 MG
     Route: 058
     Dates: start: 20210819, end: 20210819
  18. EPCORITAMAB [Suspect]
     Active Substance: EPCORITAMAB
     Dosage: INTERMEDIATE DOSE 0.8 MG
     Route: 058
     Dates: start: 20210826, end: 20210826
  19. EPCORITAMAB [Suspect]
     Active Substance: EPCORITAMAB
     Dosage: FULL DOSE: 48 MILLIGRAM
     Route: 058
     Dates: start: 20210903
  20. DIPHENHYDRAMINE [Concomitant]
     Active Substance: DIPHENHYDRAMINE
     Route: 042
     Dates: start: 20210819, end: 20211021
  21. ACETAMINOPHEN [Concomitant]
     Active Substance: ACETAMINOPHEN
     Route: 048
     Dates: start: 20210819, end: 20210819
  22. ACETAMINOPHEN [Concomitant]
     Active Substance: ACETAMINOPHEN
     Route: 048
     Dates: start: 20210819, end: 20211021
  23. RASBURICASE [Concomitant]
     Active Substance: RASBURICASE
     Dates: start: 20210819, end: 20210819
  24. APREPITANT [Concomitant]
     Active Substance: APREPITANT
     Dates: start: 20210819, end: 20210819

REACTIONS (1)
  - Tumour lysis syndrome [Not Recovered/Not Resolved]

NARRATIVE: CASE EVENT DATE: 20210820
